FAERS Safety Report 19678589 (Version 1)
Quarter: 2021Q3

REPORT INFORMATION
  Report Type: Spontaneous
  Country: US (occurrence: US)
  Receive Date: 20210809
  Receipt Date: 20210809
  Transmission Date: 20211014
  Serious: Yes (Hospitalization)
  Sender: FDA-Public Use
  Company Number: None

PATIENT
  Age: 59 Year
  Sex: Female

DRUGS (13)
  1. VYVANSE [Concomitant]
     Active Substance: LISDEXAMFETAMINE DIMESYLATE
  2. ZOLPIDEM [Concomitant]
     Active Substance: ZOLPIDEM TARTRATE
  3. OZEMPIC [Concomitant]
     Active Substance: SEMAGLUTIDE
  4. DULOXETINE. [Concomitant]
     Active Substance: DULOXETINE
  5. VITAMIN D [Concomitant]
     Active Substance: VITAMIN D NOS
  6. WEGOVY [Concomitant]
     Active Substance: SEMAGLUTIDE
  7. CIMZIA [Suspect]
     Active Substance: CERTOLIZUMAB PEGOL
     Indication: CROHN^S DISEASE
     Dosage: ?          OTHER FREQUENCY:EVERY MONTH;?
     Route: 058
     Dates: start: 20210708
  8. CYANOCOBALAM [Concomitant]
     Active Substance: CYANOCOBALAMIN
  9. AZATHIOPRINE. [Concomitant]
     Active Substance: AZATHIOPRINE
  10. DEXTROAMPHETAMINE. [Concomitant]
     Active Substance: DEXTROAMPHETAMINE
  11. ORTREXUP [Concomitant]
  12. ARMODAFINIL. [Concomitant]
     Active Substance: ARMODAFINIL
  13. FOLIC ACID. [Concomitant]
     Active Substance: FOLIC ACID

REACTIONS (1)
  - Adverse drug reaction [None]

NARRATIVE: CASE EVENT DATE: 20210716
